FAERS Safety Report 8092529-2 (Version None)
Quarter: 2012Q1

REPORT INFORMATION
  Report Type: 
  Country: None (occurrence: None)
  Receive Date: 20120128
  Receipt Date: 20110823
  Transmission Date: 20120608
  Serious: No
  Sender: FDA-Public Use
  Company Number: US-ABBOTT-11P-163-0849891-00

PATIENT
  Weight: 99.88 kg

DRUGS (7)
  1. FOLIC ACID [Concomitant]
     Indication: SUPPLEMENTATION THERAPY
  2. PAROXETINE [Concomitant]
     Indication: DEPRESSION
  3. RANITIDINE [Concomitant]
     Indication: DYSPEPSIA
  4. LISINOPRIL [Concomitant]
     Indication: HYPERTENSION
  5. HUMIRA [Suspect]
     Indication: RHEUMATOID ARTHRITIS
     Dates: start: 20110726
  6. METHOTREXATE [Concomitant]
     Indication: RHEUMATOID ARTHRITIS
  7. CLARITIN [Concomitant]
     Indication: SEASONAL ALLERGY

REACTIONS (8)
  - ACNE [None]
  - PRURITUS [None]
  - INJECTION SITE PRURITUS [None]
  - INJECTION SITE REACTION [None]
  - INJECTION SITE PAIN [None]
  - INJECTION SITE NODULE [None]
  - INJECTION SITE SWELLING [None]
  - RASH [None]
